FAERS Safety Report 4625224-X (Version None)
Quarter: 2005Q2

REPORT INFORMATION
  Report Type: 
  Country: None (occurrence: None)
  Receive Date: 20050401
  Receipt Date: 20050111
  Transmission Date: 20051028
  Serious: Yes (Other)
  Sender: FDA-Public Use
  Company Number: DE-ROCHE-392319

PATIENT
  Sex: Male
  Weight: 67 kg

DRUGS (1)
  1. ROACCUTAN [Suspect]
     Indication: ACNE
     Route: 048
     Dates: start: 20010115, end: 20010615

REACTIONS (2)
  - ECZEMA ASTEATOTIC [None]
  - OSTEOMYELITIS [None]
